FAERS Safety Report 11303343 (Version 1)
Quarter: 2015Q3

REPORT INFORMATION
  Report Type: Spontaneous
  Country: US (occurrence: US)
  Receive Date: 20150723
  Receipt Date: 20150723
  Transmission Date: 20151125
  Serious: Yes (Other)
  Sender: FDA-Public Use
  Company Number: US-SHIRE-ALL1-2013-08770

PATIENT
  Age: 30 Year
  Sex: Female
  Weight: 91.38 kg

DRUGS (1)
  1. LIALDA [Suspect]
     Active Substance: MESALAMINE
     Indication: CROHN^S DISEASE
     Dosage: 3.6 MG, 1X/DAY:QD (THREE 1.2 G TABLETS)
     Route: 048
     Dates: start: 20131206, end: 20131209

REACTIONS (2)
  - Hypersensitivity [Recovered/Resolved]
  - Product use issue [Recovered/Resolved]

NARRATIVE: CASE EVENT DATE: 20131206
